FAERS Safety Report 25914167 (Version 2)
Quarter: 2025Q4

REPORT INFORMATION
  Report Type: Report from Study
  Country: US (occurrence: US)
  Receive Date: 20251013
  Receipt Date: 20251020
  Transmission Date: 20260117
  Serious: Yes (Other)
  Sender: MALLINCKRODT
  Company Number: US-MALLINCKRODT-MNK202506242

PATIENT
  Age: 5 Month
  Sex: Male
  Weight: 8 kg

DRUGS (4)
  1. CORTICOTROPIN [Suspect]
     Active Substance: CORTICOTROPIN
     Indication: Infantile spasms
     Route: 030
     Dates: start: 20250927, end: 20250930
  2. CORTICOTROPIN [Suspect]
     Active Substance: CORTICOTROPIN
     Indication: Epilepsy
     Route: 030
     Dates: start: 20251001
  3. VIGABATRIN [Concomitant]
     Active Substance: VIGABATRIN
     Dosage: UNKNOWN
  4. VIGABATRIN [Concomitant]
     Active Substance: VIGABATRIN
     Dosage: UNKNOWN (DOSE DECREASED)

REACTIONS (7)
  - Infantile spasms [Not Recovered/Not Resolved]
  - Condition aggravated [Not Recovered/Not Resolved]
  - Blood pressure increased [Unknown]
  - Seizure [Unknown]
  - Irritability [Not Recovered/Not Resolved]
  - Increased appetite [Not Recovered/Not Resolved]
  - Injection site haemorrhage [Unknown]

NARRATIVE: CASE EVENT DATE: 20250101
